FAERS Safety Report 5615934-X (Version None)
Quarter: 2008Q1

REPORT INFORMATION
  Report Type: 
  Country: None (occurrence: None)
  Receive Date: 20080206
  Receipt Date: 20080131
  Transmission Date: 20080703
  Serious: Yes (Hospitalization)
  Sender: FDA-Public Use
  Company Number: PHBS2008BR01628

PATIENT
  Sex: Female

DRUGS (3)
  1. TEGRETOL [Suspect]
     Dosage: 10 DF, ONCE/SINGLE
     Route: 048
     Dates: start: 20080130
  2. IMIPRAMINE [Suspect]
     Dosage: 10 DF, ONCE/SINGLE
     Route: 048
     Dates: start: 20080130
  3. PHENOBARBITAL TAB [Concomitant]
     Dosage: 21 DF, ONCE/SINGLE
     Route: 048
     Dates: start: 20080130

REACTIONS (4)
  - DEPRESSED LEVEL OF CONSCIOUSNESS [None]
  - GASTRIC LAVAGE [None]
  - OVERDOSE [None]
  - SOMNOLENCE [None]
